FAERS Safety Report 13358307 (Version 1)
Quarter: 2017Q1

REPORT INFORMATION
  Report Type: Spontaneous
  Country: DE (occurrence: DE)
  Receive Date: 20170322
  Receipt Date: 20170322
  Transmission Date: 20170429
  Serious: Yes (Life-Threatening, Hospitalization)
  Sender: FDA-Public Use
  Company Number: DE-TEVA-748661GER

PATIENT
  Age: 85 Year
  Sex: Female

DRUGS (8)
  1. METHOTREXATE. [Suspect]
     Active Substance: METHOTREXATE
  2. NOVAMINSULFON-RATIOPHARM [Suspect]
     Active Substance: METAMIZOLE
     Indication: PAIN
  3. AMLODIPIN [Concomitant]
     Active Substance: AMLODIPINE BESYLATE
  4. PREDNISOLON [Concomitant]
     Active Substance: PREDNISOLONE
  5. PANTOPRAZOL [Concomitant]
     Active Substance: PANTOPRAZOLE SODIUM
  6. BISOPROLOL/HYDROCHLOROTHIAZID [Concomitant]
  7. MOXONIDIN [Concomitant]
     Active Substance: MOXONIDINE
  8. TILIDIN/NALOXON [Concomitant]

REACTIONS (1)
  - Agranulocytosis [Recovering/Resolving]

NARRATIVE: CASE EVENT DATE: 20170123
